FAERS Safety Report 5292208-0 (Version None)
Quarter: 2007Q2

REPORT INFORMATION
  Report Type: 
  Country: None (occurrence: None)
  Receive Date: 20070410
  Receipt Date: 20070409
  Transmission Date: 20071010
  Serious: Yes (Life-Threatening)
  Sender: FDA-Public Use
  Company Number: AT-ROCHE-240384

PATIENT
  Age: 61 Year
  Sex: Female

DRUGS (2)
  1. INTERFERON ALFA-2A [Suspect]
     Indication: MALIGNANT MELANOMA
     Dosage: DOSE: 3.0 MIO.I.U.
     Route: 058
     Dates: start: 19980318, end: 20000124
  2. PLACEBO [Suspect]
     Indication: MALIGNANT MELANOMA
     Route: 048
     Dates: start: 19980318, end: 20000124

REACTIONS (2)
  - DEEP VEIN THROMBOSIS [None]
  - NEOPLASM [None]
